FAERS Safety Report 6663951-3 (Version None)
Quarter: 2010Q2

REPORT INFORMATION
  Report Type: 
  Country: None (occurrence: None)
  Receive Date: 20100401
  Receipt Date: 20100329
  Transmission Date: 20101027
  Serious: Yes (Life-Threatening)
  Sender: FDA-Public Use
  Company Number: DK-ASTRAZENECA-2010SE13843

PATIENT
  Age: 19372 Day
  Sex: Male
  Weight: 78 kg

DRUGS (3)
  1. SEROQUEL [Suspect]
     Indication: DEPRESSION
     Route: 048
     Dates: start: 20100318
  2. OMEPRAZOL ^STADA^ [Interacting]
     Indication: DYSPEPSIA
     Route: 048
     Dates: start: 20080515, end: 20100323
  3. ZOLOFT [Interacting]
     Indication: DEPRESSION
     Route: 048
     Dates: start: 20100318

REACTIONS (2)
  - CARDIAC ARREST [None]
  - DRUG INTERACTION [None]
